FAERS Safety Report 7625357-X (Version None)
Quarter: 2011Q3

REPORT INFORMATION
  Report Type: 
  Country: None (occurrence: None)
  Receive Date: 20110721
  Receipt Date: 20110712
  Transmission Date: 20111222
  Serious: Yes (Hospitalization, Other)
  Sender: FDA-Public Use
  Company Number: US-BAYER-2011-034628

PATIENT
  Age: 16 Year
  Sex: Female
  Weight: 63 kg

DRUGS (4)
  1. DROSPIRENONE AND ETHINYL ESTRADIOL [Suspect]
     Indication: CONTRACEPTION
     Dosage: UNK
     Route: 048
     Dates: start: 20100712, end: 20100801
  2. IBUPROFEN [Concomitant]
     Dosage: UNK UNK, PRN
  3. DEPO-PROVERA [Concomitant]
     Dosage: UNK
     Dates: start: 20100901
  4. DROSPIRENONE AND ETHINYL ESTRADIOL [Suspect]
     Indication: MENSTRUAL CYCLE MANAGEMENT

REACTIONS (11)
  - DYSPNOEA [None]
  - ABDOMINAL PAIN UPPER [None]
  - ANXIETY [None]
  - PULMONARY INFARCTION [None]
  - FEAR [None]
  - PULMONARY EMBOLISM [None]
  - MUSCLE SPASMS [None]
  - DEPRESSION [None]
  - BACK PAIN [None]
  - FEAR OF DEATH [None]
  - CHEST PAIN [None]
